FAERS Safety Report 16318357 (Version 2)
Quarter: 2019Q2

REPORT INFORMATION
  Report Type: Spontaneous
  Country: DE (occurrence: DE)
  Receive Date: 20190516
  Receipt Date: 20190625
  Transmission Date: 20190711
  Serious: Yes (Other)
  Sender: FDA-Public Use
  Company Number: DE-DRREDDYS-GER/GER/19/0110147

PATIENT
  Age: 82 Year
  Sex: Male
  Weight: 94 kg

DRUGS (5)
  1. CIPROFLOXACIN. [Suspect]
     Active Substance: CIPROFLOXACIN
     Indication: PNEUMONIA
  2. METFORMIN 800 MG [Concomitant]
     Indication: TYPE 2 DIABETES MELLITUS
  3. MOXIFLOXACIN. [Suspect]
     Active Substance: MOXIFLOXACIN
     Indication: PRODUCT USED FOR UNKNOWN INDICATION
     Dosage: BEGINNEND MIT 250 MG, 2015 NICHT MEHR WIRKSAM, ERH?HUNG AUF 500 MG (STARTING WITH 250 MG, NO LONGER
     Dates: start: 2012, end: 2017
  4. CIPROFLOXACIN. [Suspect]
     Active Substance: CIPROFLOXACIN
     Indication: BRONCHITIS
     Dosage: BEGINNEND MIT 250 MG, 2015 NICHT MEHR WIRKSAM, ERHOEHUNG AUF 500 MG (STARTING WITH 250 MG, NO LONGER
     Route: 048
     Dates: start: 2012, end: 2017
  5. CIPROFLOXACIN. [Suspect]
     Active Substance: CIPROFLOXACIN
     Indication: CONDITION AGGRAVATED

REACTIONS (9)
  - Joint swelling [Recovered/Resolved with Sequelae]
  - Gait disturbance [Recovered/Resolved with Sequelae]
  - Diabetic neuropathy [Recovered/Resolved with Sequelae]
  - Paraesthesia [Recovered/Resolved with Sequelae]
  - Muscle disorder [Recovered/Resolved with Sequelae]
  - Tendon injury [Recovered/Resolved with Sequelae]
  - Tendon discomfort [Recovered/Resolved with Sequelae]
  - Tenotomy [Unknown]
  - Tendon rupture [Recovered/Resolved with Sequelae]

NARRATIVE: CASE EVENT DATE: 2016
